FAERS Safety Report 6540210-0 (Version None)
Quarter: 2010Q1

REPORT INFORMATION
  Report Type: 
  Country: None (occurrence: None)
  Receive Date: 20100115
  Receipt Date: 20100109
  Transmission Date: 20100710
  Serious: Yes (Hospitalization)
  Sender: FDA-Public Use
  Company Number: CA-JNJFOC-20091106486

PATIENT
  Sex: Female
  Weight: 63.6 kg

DRUGS (5)
  1. REMICADE [Suspect]
     Indication: RHEUMATOID ARTHRITIS
     Dosage: 26 INFUSIONS
     Route: 042
     Dates: start: 20060101, end: 20090824
  2. PREDNISONE [Concomitant]
  3. ARAVA [Concomitant]
     Route: 048
  4. GABAPENTIN [Concomitant]
     Indication: PAIN
  5. BLOOD PRESSURE MEDICATION NOS [Concomitant]
     Indication: BLOOD PRESSURE

REACTIONS (4)
  - DRUG EFFECT DECREASED [None]
  - HOSPITALISATION [None]
  - INFECTION [None]
  - URINARY TRACT INFECTION [None]
